FAERS Safety Report 6211658-9 (Version None)
Quarter: 2009Q2

REPORT INFORMATION
  Report Type: 
  Country: None (occurrence: None)
  Receive Date: 20090602
  Receipt Date: 20090525
  Transmission Date: 20091009
  Serious: Yes (Other)
  Sender: FDA-Public Use
  Company Number: A0787571A

PATIENT
  Sex: Male

DRUGS (3)
  1. ZOVIRAX [Suspect]
     Indication: GENITAL HERPES
     Dosage: 400MG THREE TIMES PER DAY
     Dates: start: 20090508, end: 20090514
  2. COFFEE [Concomitant]
  3. GREEN TEA [Concomitant]

REACTIONS (7)
  - ABDOMINAL DISCOMFORT [None]
  - ANOREXIA [None]
  - ANXIETY [None]
  - COLD SWEAT [None]
  - HYPOGLYCAEMIA [None]
  - MUSCLE SPASMS [None]
  - NERVOUS SYSTEM DISORDER [None]
